FAERS Safety Report 11512647 (Version 1)
Quarter: 2015Q3

REPORT INFORMATION
  Report Type: Spontaneous
  Country: IN (occurrence: IN)
  Receive Date: 20150916
  Receipt Date: 20150916
  Transmission Date: 20151125
  Serious: Yes (Death, Other)
  Sender: FDA-Public Use
  Company Number: IN-PFIZER INC-2015297238

PATIENT
  Age: 72 Year
  Sex: Male

DRUGS (1)
  1. SUTENT [Suspect]
     Active Substance: SUNITINIB MALATE
     Indication: METASTATIC RENAL CELL CARCINOMA
     Dosage: 50 MG, 1X/DAY
     Route: 048
     Dates: start: 20150516

REACTIONS (8)
  - Thrombocytopenia [Unknown]
  - Immunodeficiency [Unknown]
  - Hepatic function abnormal [Unknown]
  - Rectal haemorrhage [Unknown]
  - Hypoproteinaemia [Unknown]
  - Death [Fatal]
  - Hypertension [Unknown]
  - Leukopenia [Unknown]

NARRATIVE: CASE EVENT DATE: 201506
